FAERS Safety Report 12597882 (Version 1)
Quarter: 2016Q3

REPORT INFORMATION
  Report Type: Spontaneous
  Country: CA (occurrence: CA)
  Receive Date: 20160726
  Receipt Date: 20160726
  Transmission Date: 20161109
  Serious: Yes (Hospitalization)
  Sender: FDA-Public Use
  Company Number: CA-CELGENEUS-CAN-2016056551

PATIENT
  Age: 73 Year
  Sex: Male

DRUGS (34)
  1. ABRAXANE [Suspect]
     Active Substance: PACLITAXEL
     Dosage: 125
     Route: 065
     Dates: start: 20160420
  2. ABRAXANE [Suspect]
     Active Substance: PACLITAXEL
     Dosage: 100
     Route: 065
     Dates: start: 20160511
  3. ABRAXANE [Suspect]
     Active Substance: PACLITAXEL
     Dosage: 75
     Route: 065
     Dates: start: 20160609
  4. HYDROMORPHONE [Concomitant]
     Active Substance: HYDROMORPHONE
     Indication: PAIN
     Route: 065
     Dates: start: 201605
  5. ABRAXANE [Suspect]
     Active Substance: PACLITAXEL
     Indication: PANCREATIC CARCINOMA METASTATIC
     Dosage: 125
     Route: 065
     Dates: start: 20160411
  6. DEMCIZUMAB [Suspect]
     Active Substance: DEMCIZUMAB
     Indication: PANCREATIC CARCINOMA METASTATIC
     Route: 065
     Dates: start: 20160411
  7. GEMCITABINE [Suspect]
     Active Substance: GEMCITABINE\GEMCITABINE HYDROCHLORIDE
     Dosage: 800
     Route: 065
     Dates: start: 20160511
  8. GEMCITABINE [Suspect]
     Active Substance: GEMCITABINE\GEMCITABINE HYDROCHLORIDE
     Dosage: 600
     Route: 065
     Dates: start: 20160609
  9. CONTINUOUS SALINE [Concomitant]
     Indication: DEHYDRATION
     Route: 065
     Dates: start: 20160427, end: 20160427
  10. PANCRELIPASE. [Concomitant]
     Active Substance: PANCRELIPASE
     Indication: PANCREATIC ENZYME ABNORMALITY
     Route: 065
     Dates: start: 20160529
  11. GEMCITABINE [Suspect]
     Active Substance: GEMCITABINE\GEMCITABINE HYDROCHLORIDE
     Indication: PANCREATIC CARCINOMA METASTATIC
     Dosage: 1000
     Route: 065
     Dates: start: 20160411
  12. METOCLOPRAMIDE HCL [Concomitant]
     Active Substance: METOCLOPRAMIDE HYDROCHLORIDE
     Indication: NAUSEA
     Route: 065
     Dates: start: 20160411
  13. ONDANSETRON [Concomitant]
     Active Substance: ONDANSETRON
     Indication: NAUSEA
     Route: 065
     Dates: start: 20160408
  14. TRAMADOL AND ACETAMINOPHEN [Concomitant]
     Active Substance: ACETAMINOPHEN\TRAMADOL HYDROCHLORIDE
     Indication: ABDOMINAL PAIN
     Dosage: 37.5-325MG
     Route: 065
     Dates: start: 2016
  15. TRANEXAMIC ACID. [Concomitant]
     Active Substance: TRANEXAMIC ACID
     Indication: EPISTAXIS
     Route: 065
  16. DEMCIZUMAB [Suspect]
     Active Substance: DEMCIZUMAB
     Route: 065
     Dates: start: 20160511, end: 20160511
  17. ACCUPRIL [Concomitant]
     Active Substance: QUINAPRIL HYDROCHLORIDE
     Indication: PROPHYLAXIS
     Route: 065
     Dates: end: 20160505
  18. ATIVAN [Concomitant]
     Active Substance: LORAZEPAM
     Indication: CONFUSIONAL STATE
     Route: 065
     Dates: start: 20160427, end: 20160427
  19. ZOFRAN [Concomitant]
     Active Substance: ONDANSETRON HYDROCHLORIDE
     Indication: NAUSEA
     Route: 065
     Dates: start: 20160411
  20. HYDROCORTISONE. [Concomitant]
     Active Substance: HYDROCORTISONE
     Indication: RASH
     Route: 065
     Dates: start: 20160518
  21. MICONAZOLE NITRATE. [Concomitant]
     Active Substance: MICONAZOLE NITRATE
     Indication: NAIL INFECTION
     Route: 065
     Dates: start: 20160608, end: 20160629
  22. MYLAN NITRO [Concomitant]
     Indication: PRODUCT USED FOR UNKNOWN INDICATION
     Route: 065
     Dates: start: 20160202
  23. GEMCITABINE [Suspect]
     Active Substance: GEMCITABINE\GEMCITABINE HYDROCHLORIDE
     Dosage: 600
     Route: 065
     Dates: start: 20160518, end: 20160518
  24. MORPHINE SULFATE. [Concomitant]
     Active Substance: MORPHINE SULFATE
     Indication: ABDOMINAL PAIN
     Route: 065
     Dates: start: 2016
  25. ROSUVASTATIN. [Concomitant]
     Active Substance: ROSUVASTATIN
     Indication: HYPERLIPIDAEMIA
     Route: 065
     Dates: start: 2001
  26. POLYSPORIN [Concomitant]
     Active Substance: BACITRACIN ZINC\POLYMYXIN B SULFATE
     Indication: NAIL INFECTION
     Route: 065
     Dates: start: 20160615
  27. LAX-A-DAY [Concomitant]
     Indication: CONSTIPATION
     Route: 065
     Dates: start: 20160408
  28. METFORMIN HCL [Concomitant]
     Active Substance: METFORMIN HYDROCHLORIDE
     Indication: TYPE 2 DIABETES MELLITUS
     Route: 065
     Dates: start: 2010
  29. JANUVIA [Concomitant]
     Active Substance: SITAGLIPTIN PHOSPHATE
     Indication: TYPE 2 DIABETES MELLITUS
     Route: 065
     Dates: start: 2004
  30. MAGNILIFE [Concomitant]
     Indication: DIABETIC NEUROPATHY
     Route: 061
     Dates: start: 2011
  31. ABRAXANE [Suspect]
     Active Substance: PACLITAXEL
     Dosage: 75
     Route: 065
     Dates: start: 20160518, end: 20160518
  32. DEMCIZUMAB [Suspect]
     Active Substance: DEMCIZUMAB
     Route: 065
     Dates: start: 20160609
  33. GEMCITABINE [Suspect]
     Active Substance: GEMCITABINE\GEMCITABINE HYDROCHLORIDE
     Dosage: 1000
     Route: 065
     Dates: start: 20160420
  34. IMODIUM [Concomitant]
     Active Substance: LOPERAMIDE HYDROCHLORIDE
     Indication: DIARRHOEA
     Route: 065
     Dates: start: 20160511

REACTIONS (3)
  - Syncope [Recovered/Resolved]
  - Pancytopenia [Recovered/Resolved]
  - Presyncope [Recovered/Resolved]

NARRATIVE: CASE EVENT DATE: 20160524
